FAERS Safety Report 11293997 (Version 1)
Quarter: 2015Q3

REPORT INFORMATION
  Report Type: Report from Study
  Country: US (occurrence: US)
  Receive Date: 20150722
  Receipt Date: 20150722
  Transmission Date: 20151125
  Serious: No
  Sender: FDA-Public Use
  Company Number: US-AMGEN-USASL2015040287

PATIENT
  Age: 66 Year
  Sex: Female

DRUGS (5)
  1. GABAPENTIN. [Concomitant]
     Active Substance: GABAPENTIN
     Indication: NEUROPATHY PERIPHERAL
     Dosage: UNK
  2. ACYCLOVIR                          /00587301/ [Concomitant]
     Active Substance: ACYCLOVIR
     Indication: PROPHYLAXIS
     Dosage: UNK
  3. KYPROLIS [Suspect]
     Active Substance: CARFILZOMIB
     Indication: PLASMA CELL MYELOMA
     Dosage: UNK, TWICE A WEEK
     Route: 042
     Dates: start: 201405
  4. PROCRIT [Concomitant]
     Active Substance: ERYTHROPOIETIN
     Indication: HAEMOGLOBIN DECREASED
     Dosage: UNK
     Route: 065
     Dates: start: 201411
  5. MEDROL [Concomitant]
     Active Substance: METHYLPREDNISOLONE
     Indication: PLASMA CELL MYELOMA
     Dosage: UNK

REACTIONS (3)
  - Nausea [Not Recovered/Not Resolved]
  - Post-traumatic neck syndrome [Recovering/Resolving]
  - Infection [Not Recovered/Not Resolved]

NARRATIVE: CASE EVENT DATE: 201503
